FAERS Safety Report 7102579-8 (Version None)
Quarter: 2010Q4

REPORT INFORMATION
  Report Type: 
  Country: None (occurrence: None)
  Receive Date: 20101115
  Receipt Date: 20101108
  Transmission Date: 20110411
  Serious: Yes (Hospitalization)
  Sender: FDA-Public Use
  Company Number: A0788256A

PATIENT
  Age: 45 Year
  Sex: Female

DRUGS (2)
  1. AVANDIA [Suspect]
     Dosage: 4MG TWICE PER DAY
     Route: 048
     Dates: start: 20050315, end: 20070728
  2. METFORMIN HCL [Concomitant]
     Dosage: 100MG TWICE PER DAY
     Route: 048
     Dates: start: 20050306, end: 20070712

REACTIONS (1)
  - MYOCARDIAL INFARCTION [None]
